FAERS Safety Report 7068912-0 (Version None)
Quarter: 2010Q4

REPORT INFORMATION
  Report Type: 
  Country: None (occurrence: None)
  Receive Date: 20101028
  Receipt Date: 20101020
  Transmission Date: 20110411
  Serious: Yes (Hospitalization)
  Sender: FDA-Public Use
  Company Number: US-PERRIGO-10US014123

PATIENT
  Sex: Female
  Weight: 72.562 kg

DRUGS (1)
  1. LORATADINE 10 MG 612 [Suspect]
     Indication: PULMONARY CONGESTION
     Dosage: 10 MG, QD
     Route: 048
     Dates: start: 20101011, end: 20101013

REACTIONS (4)
  - DRUG INEFFECTIVE [None]
  - EMPHYSEMA [None]
  - OFF LABEL USE [None]
  - PULMONARY CONGESTION [None]
